FAERS Safety Report 8958757 (Version 1)
Quarter: 2012Q4

REPORT INFORMATION
  Report Type: 
  Country: CA (occurrence: CA)
  Receive Date: 20121212
  Receipt Date: 20121212
  Transmission Date: 20130627
  Serious: Yes (Other)
  Sender: FDA-Public Use
  Company Number: CA-SPECIAR-2012-20961

PATIENT
  Age: 45 Year
  Sex: Female

DRUGS (2)
  1. TRELSTAR (WATSON LABORATORIES) [Suspect]
     Indication: BREAST CANCER
     Dosage: 3.75mg once a month
     Route: 030
     Dates: start: 20060203
  2. EXEMESTANE [Suspect]
     Indication: BREAST CANCER
     Dosage: 25 mg, daily
     Route: 048
     Dates: start: 20060705

REACTIONS (1)
  - Fracture [Recovered/Resolved]
